FAERS Safety Report 10153883 (Version 3)
Quarter: 2014Q2

REPORT INFORMATION
  Report Type: Spontaneous
  Country: US (occurrence: US)
  Receive Date: 20140506
  Receipt Date: 20140527
  Transmission Date: 20141212
  Serious: No
  Sender: FDA-Public Use
  Company Number: US-009507513-1404USA013163

PATIENT
  Age: 28 Year
  Sex: Female
  Weight: 58.96 kg

DRUGS (3)
  1. NEXPLANON [Suspect]
     Indication: CONTRACEPTION
     Dosage: 1ROD/ THREE YEARS
     Route: 059
     Dates: start: 20140328, end: 20140422
  2. NEXPLANON [Suspect]
     Dosage: OTHER ARM
     Route: 059
     Dates: start: 20140422
  3. NEXPLANON [Suspect]
     Dosage: 1 ROD/THREE YEARS
     Route: 059
     Dates: start: 2011, end: 2014

REACTIONS (4)
  - Implant site cellulitis [Unknown]
  - Implant site induration [Unknown]
  - Implant site nodule [Unknown]
  - Product quality issue [Unknown]
